FAERS Safety Report 9398959 (Version 1)
Quarter: 2013Q3

REPORT INFORMATION
  Report Type: Spontaneous
  Country: US (occurrence: US)
  Receive Date: 20130712
  Receipt Date: 20130712
  Transmission Date: 20140515
  Serious: No
  Sender: FDA-Public Use
  Company Number: US-FOUGERA-2013FO000062

PATIENT
  Sex: Female
  Weight: 77.18 kg

DRUGS (2)
  1. METRONIDAZOLE [Suspect]
     Indication: ROSACEA
     Route: 061
     Dates: start: 201301
  2. METRONIDAZOLE [Suspect]
     Route: 061
     Dates: start: 201201, end: 201203

REACTIONS (4)
  - Rosacea [Not Recovered/Not Resolved]
  - Therapeutic response decreased [Unknown]
  - Condition aggravated [Not Recovered/Not Resolved]
  - Drug ineffective [Not Recovered/Not Resolved]
